FAERS Safety Report 4790147-2 (Version None)
Quarter: 2005Q4

REPORT INFORMATION
  Report Type: 
  Country: None (occurrence: None)
  Receive Date: 20051006
  Receipt Date: 20050926
  Transmission Date: 20060501
  Serious: Yes (Hospitalization)
  Sender: FDA-Public Use
  Company Number: US-ROCHE-419139

PATIENT
  Age: 37 Year
  Sex: Male
  Weight: 102.1 kg

DRUGS (4)
  1. PEGASYS [Suspect]
     Route: 058
     Dates: start: 20040801
  2. PEGASYS [Suspect]
     Route: 058
  3. COPEGUS [Suspect]
     Route: 048
     Dates: start: 20040801
  4. COPEGUS [Suspect]
     Route: 048

REACTIONS (12)
  - ANXIETY [None]
  - DRY SKIN [None]
  - FATIGUE [None]
  - GALLBLADDER DISORDER [None]
  - GASTROINTESTINAL INFECTION [None]
  - IATROGENIC INJURY [None]
  - INJECTION SITE REACTION [None]
  - INSOMNIA [None]
  - INTESTINAL PERFORATION [None]
  - IRRITABILITY [None]
  - MOOD ALTERED [None]
  - SCAB [None]
